FAERS Safety Report 8082641-6 (Version None)
Quarter: 2012Q1

REPORT INFORMATION
  Report Type: 
  Country: None (occurrence: None)
  Receive Date: 20120127
  Receipt Date: 20110224
  Transmission Date: 20120608
  Serious: No
  Sender: FDA-Public Use
  Company Number: US-ABBOTT-11P-163-0707357-00

PATIENT
  Age: 36 Year
  Sex: Male

DRUGS (4)
  1. LORTAB [Concomitant]
     Indication: PAIN
     Dosage: EVERY 6 HOURS
  2. NEXIUM [Concomitant]
     Indication: PRODUCT USED FOR UNKNOWN INDICATION
     Route: 048
  3. PHENERGEN [Concomitant]
     Indication: NAUSEA
     Dosage: EVERY 4-6 HOURS
  4. HUMIRA [Suspect]
     Indication: CROHN'S DISEASE
     Dates: start: 20101001

REACTIONS (3)
  - DRUG DOSE OMISSION [None]
  - INJECTION SITE HAEMATOMA [None]
  - NASOPHARYNGITIS [None]
